FAERS Safety Report 10031721 (Version 2)
Quarter: 2014Q2

REPORT INFORMATION
  Report Type: Spontaneous
  Country: US (occurrence: US)
  Receive Date: 20140324
  Receipt Date: 20140428
  Transmission Date: 20141212
  Serious: Yes (Other)
  Sender: FDA-Public Use
  Company Number: US-PFIZER INC-2014083512

PATIENT
  Age: 59 Year
  Sex: Male
  Weight: 92.97 kg

DRUGS (2)
  1. CHANTIX [Suspect]
     Indication: SMOKING CESSATION THERAPY
     Dosage: 1 MG DAILY
     Route: 048
     Dates: start: 20140221, end: 20140221
  2. ADDERALL [Suspect]
     Dosage: UNK

REACTIONS (2)
  - Deafness [Recovered/Resolved]
  - Nausea [Unknown]
